FAERS Safety Report 7995862-5 (Version None)
Quarter: 2011Q4

REPORT INFORMATION
  Report Type: 
  Country: None (occurrence: None)
  Receive Date: 20111220
  Receipt Date: 20111214
  Transmission Date: 20120403
  Serious: No
  Sender: FDA-Public Use
  Company Number: US-B.I. PHARMACEUTICALS,INC./RIDGEFIELD-2011-BP-28161BP

PATIENT
  Age: 30 Year
  Sex: Male

DRUGS (2)
  1. ZANTAC 150 [Suspect]
     Dosage: 750 MG
     Route: 048
     Dates: start: 20111214, end: 20111214
  2. ZANTAC 150 [Suspect]
     Indication: ABDOMINAL PAIN UPPER
     Dosage: 750 MG
     Route: 048
     Dates: start: 20111214, end: 20111214

REACTIONS (1)
  - INTENTIONAL OVERDOSE [None]
